FAERS Safety Report 12139252 (Version 1)
Quarter: 2016Q1

REPORT INFORMATION
  Report Type: Spontaneous
  Country: CZ (occurrence: CZ)
  Receive Date: 20160303
  Receipt Date: 20160303
  Transmission Date: 20160526
  Serious: Yes (Hospitalization, Other)
  Sender: FDA-Public Use
  Company Number: CZ-ALEMBIC PHARMACUETICALS LIMITED-2016SCAL000158

PATIENT
  Age: 62 Year
  Sex: Female

DRUGS (1)
  1. METOPROLOL TARTRATE. [Suspect]
     Active Substance: METOPROLOL TARTRATE
     Indication: PRODUCT USED FOR UNKNOWN INDICATION
     Dosage: 100 PILLS OF 50 MG

REACTIONS (4)
  - Pulseless electrical activity [Unknown]
  - Suicide attempt [Unknown]
  - Overdose [Unknown]
  - Haemodynamic instability [Unknown]
